FAERS Safety Report 9071230 (Version 1)
Quarter: 2013Q1

REPORT INFORMATION
  Report Type: Spontaneous
  Country: None (occurrence: US)
  Receive Date: 20130206
  Receipt Date: 20130206
  Transmission Date: 20140127
  Serious: No
  Sender: FDA-Public Use
  Company Number: US-ALLERGAN-1209709US

PATIENT
  Age: 57 Year
  Sex: Female

DRUGS (2)
  1. RESTASIS? [Suspect]
     Indication: DACRYOSTENOSIS ACQUIRED
     Dosage: 1 GTT, SINGLE
     Route: 047
     Dates: start: 20120709, end: 20120709
  2. LOTEMAX [Concomitant]
     Indication: DACRYOSTENOSIS ACQUIRED
     Dosage: 1 GTT, QD
     Route: 047

REACTIONS (4)
  - Erythema [Recovered/Resolved]
  - Feeling hot [Recovered/Resolved]
  - Off label use [Unknown]
  - Inappropriate schedule of drug administration [Unknown]
